FAERS Safety Report 6104238-7 (Version None)
Quarter: 2009Q1

REPORT INFORMATION
  Report Type: 
  Country: None (occurrence: None)
  Receive Date: 20090305
  Receipt Date: 20090225
  Transmission Date: 20090719
  Serious: Yes (Other)
  Sender: FDA-Public Use
  Company Number: GB-TEVA-186397ISR

PATIENT
  Age: 15 Year

DRUGS (1)
  1. FLUOXETINE [Suspect]
     Indication: DEPRESSION
     Route: 048
     Dates: start: 20071116, end: 20080201

REACTIONS (3)
  - DISINHIBITION [None]
  - DISSOCIATION [None]
  - HOMICIDE [None]
